FAERS Safety Report 5619977-1 (Version None)
Quarter: 2008Q1

REPORT INFORMATION
  Report Type: 
  Country: None (occurrence: None)
  Receive Date: 20080208
  Receipt Date: 20080205
  Transmission Date: 20080703
  Serious: Yes (Death)
  Sender: FDA-Public Use
  Company Number: US-JNJFOC-20080201039

PATIENT
  Age: 61 Year
  Sex: Male

DRUGS (2)
  1. REOPRO [Suspect]
     Dosage: ONE HOUR INFUSION
  2. REOPRO [Suspect]
     Indication: MYOCARDIAL INFARCTION
     Dosage: BOLUS

REACTIONS (1)
  - AORTIC ANEURYSM RUPTURE [None]
